FAERS Safety Report 6285781-7 (Version None)
Quarter: 2009Q3

REPORT INFORMATION
  Report Type: 
  Country: None (occurrence: None)
  Receive Date: 20090724
  Receipt Date: 20090710
  Transmission Date: 20100115
  Serious: Yes (Other)
  Sender: FDA-Public Use
  Company Number: 2009S1005468

PATIENT
  Age: 65 Year
  Sex: Male

DRUGS (5)
  1. PHOSPHOSODA FLAVOR NOT SPECIFIED [Suspect]
     Indication: COLONOSCOPY
     Dosage: 90 ML; TOTAL; PO
     Route: 048
     Dates: start: 20080210, end: 20080211
  2. ZOCOR [Suspect]
  3. LISINOPRIL [Concomitant]
  4. HYDROCHLOROTHIAZIDE [Concomitant]
  5. PROSCAR [Concomitant]

REACTIONS (1)
  - URATE NEPHROPATHY [None]
